FAERS Safety Report 25109681 (Version 2)
Quarter: 2025Q2

REPORT INFORMATION
  Report Type: Spontaneous
  Country: US (occurrence: US)
  Receive Date: 20250323
  Receipt Date: 20250417
  Transmission Date: 20250716
  Serious: Yes (Hospitalization, Disabling, Other)
  Sender: BRISTOL MYERS SQUIBB
  Company Number: US-BRISTOL-MYERS SQUIBB COMPANY-2025-039418

PATIENT
  Age: 79 Year
  Sex: Male
  Weight: 77.56 kg

DRUGS (5)
  1. REVLIMID [Suspect]
     Active Substance: LENALIDOMIDE
     Indication: Diffuse large B-cell lymphoma
     Dosage: ONCE DAILY FOR 14 DAYS, OFF 14 DAYS
     Route: 048
     Dates: start: 202411
  2. ELIQUIS [Concomitant]
     Active Substance: APIXABAN
     Indication: Atrial fibrillation
     Dosage: BID;
     Route: 048
     Dates: start: 20240615
  3. METOPROLOL [Concomitant]
     Active Substance: METOPROLOL
     Indication: Atrial fibrillation
     Dosage: QD; DURATION CONTINUOUS
     Route: 048
  4. OXYCODONE [Concomitant]
     Active Substance: OXYCODONE
     Indication: Pain
  5. TAMSULOSIN [Concomitant]
     Active Substance: TAMSULOSIN
     Indication: Prostatomegaly
     Dosage: QHS

REACTIONS (6)
  - Mental impairment [Unknown]
  - Urinary retention [Not Recovered/Not Resolved]
  - Prostatic obstruction [Not Recovered/Not Resolved]
  - Off label use [Unknown]
  - Malignant neoplasm progression [Unknown]
  - Benign prostatic hyperplasia [Unknown]

NARRATIVE: CASE EVENT DATE: 20241201
